FAERS Safety Report 5862453-1 (Version None)
Quarter: 2008Q3

REPORT INFORMATION
  Report Type: 
  Country: None (occurrence: None)
  Receive Date: 20080827
  Receipt Date: 20080827
  Transmission Date: 20090109
  Serious: Yes (Hospitalization)
  Sender: FDA-Public Use
  Company Number: None

PATIENT
  Age: 60 Year
  Sex: Male
  Weight: 90.4 kg

DRUGS (1)
  1. LITHIUM CARBONATE [Suspect]
     Indication: BIPOLAR I DISORDER
     Dosage: 1200 MG AT BEDTIME PO
     Route: 048
     Dates: start: 20040407, end: 20080809

REACTIONS (4)
  - ANTIPSYCHOTIC DRUG LEVEL INCREASED [None]
  - CONFUSIONAL STATE [None]
  - DIZZINESS [None]
  - DYSARTHRIA [None]
